FAERS Safety Report 23622074 (Version 1)
Quarter: 2024Q1

REPORT INFORMATION
  Report Type: Spontaneous
  Country: US (occurrence: None)
  Receive Date: 20240311
  Receipt Date: 20240311
  Transmission Date: 20240409
  Serious: Yes (Disabling)
  Sender: FDA-Public Use
  Company Number: None

PATIENT
  Age: 24 Year
  Sex: Female
  Weight: 100.35 kg

DRUGS (12)
  1. MOUNJARO [Suspect]
     Active Substance: TIRZEPATIDE
     Indication: Insulin resistance
     Dosage: OTHER QUANTITY : 1 INJECTION(S);?FREQUENCY : WEEKLY;?
     Route: 058
     Dates: start: 20240309, end: 20240309
  2. MOUNJARO [Suspect]
     Active Substance: TIRZEPATIDE
     Indication: Obesity
  3. LEVOTHYROXINE [Concomitant]
     Active Substance: LEVOTHYROXINE\LEVOTHYROXINE SODIUM
  4. PROPRANOLOL HYDROCHLORIDE [Concomitant]
     Active Substance: PROPRANOLOL HYDROCHLORIDE
  5. Topiromate [Concomitant]
  6. EFFEXOR [Concomitant]
     Active Substance: VENLAFAXINE HYDROCHLORIDE
  7. ABILIFY [Concomitant]
     Active Substance: ARIPIPRAZOLE
  8. EMGALITY [Concomitant]
     Active Substance: GALCANEZUMAB-GNLM
  9. VITAMIN B12 [Concomitant]
     Active Substance: CYANOCOBALAMIN
  10. VITAMIN D NOS [Concomitant]
     Active Substance: VITAMIN D NOS
  11. VITAMINS [Concomitant]
     Active Substance: VITAMINS
  12. OMEPRAZOLE [Concomitant]
     Active Substance: OMEPRAZOLE

REACTIONS (9)
  - Feeling hot [None]
  - Hypoaesthesia [None]
  - Hypoaesthesia oral [None]
  - Hypoaesthesia oral [None]
  - Muscular weakness [None]
  - Eye pain [None]
  - Facial pain [None]
  - Middle insomnia [None]
  - Deafness unilateral [None]

NARRATIVE: CASE EVENT DATE: 20240309
